FAERS Safety Report 20099787 (Version 2)
Quarter: 2025Q2

REPORT INFORMATION
  Report Type: Spontaneous
  Country: FR (occurrence: FR)
  Receive Date: 20211123
  Receipt Date: 20250603
  Transmission Date: 20250717
  Serious: Yes (Other)
  Sender: AUROBINDO
  Company Number: FR-MYLANLABS-2021M1080590

PATIENT
  Age: 40 Year
  Sex: Female

DRUGS (2)
  1. PREDNISONE [Suspect]
     Active Substance: PREDNISONE
     Indication: Congenital thrombocytopenia
     Dosage: 1 MILLIGRAM/KILOGRAM, ONCE A DAY (1 MILLIGRAM/KILOGRAM, QD, 5-10 MG EVERY DAY)
     Route: 065
  2. IRON [Concomitant]
     Active Substance: IRON
     Indication: Anaemia
     Route: 065

REACTIONS (2)
  - Pseudo Cushing^s syndrome [Unknown]
  - Steroid dependence [Unknown]
